FAERS Safety Report 20446494 (Version 2)
Quarter: 2022Q1

REPORT INFORMATION
  Report Type: Report from Study
  Country: DE (occurrence: DE)
  Receive Date: 20220208
  Receipt Date: 20220325
  Transmission Date: 20220423
  Serious: Yes (Hospitalization)
  Sender: FDA-Public Use
  Company Number: DE-JAZZ-2022-DE-002297

PATIENT
  Age: 71 Year
  Sex: Female

DRUGS (1)
  1. CYTARABINE\DAUNORUBICIN [Suspect]
     Active Substance: CYTARABINE\DAUNORUBICIN
     Dosage: 244.8 MILLIGRAM, 3X/CYCLE
     Route: 042
     Dates: start: 20211222, end: 20211226

REACTIONS (1)
  - Delayed haematopoietic reconstitution [Recovered/Resolved]

NARRATIVE: CASE EVENT DATE: 20220202
